FAERS Safety Report 25938873 (Version 3)
Quarter: 2025Q4

REPORT INFORMATION
  Report Type: Report from Study
  Country: KR (occurrence: KR)
  Receive Date: 20251019
  Receipt Date: 20251030
  Transmission Date: 20260118
  Serious: Yes (Hospitalization)
  Sender: ABBVIE
  Company Number: KR-ABBVIE-6506250

PATIENT
  Age: 81 Year
  Sex: Female
  Weight: 61 kg

DRUGS (42)
  1. VENCLEXTA [Suspect]
     Active Substance: VENETOCLAX
     Indication: Acute myeloid leukaemia
     Route: 048
     Dates: start: 20250428
  2. VENCLEXTA [Suspect]
     Active Substance: VENETOCLAX
     Indication: Acute myeloid leukaemia
     Route: 048
  3. VENCLEXTA [Suspect]
     Active Substance: VENETOCLAX
     Indication: Acute myeloid leukaemia
     Route: 048
     Dates: start: 20250407, end: 20250414
  4. VENCLEXTA [Suspect]
     Active Substance: VENETOCLAX
     Indication: Acute myeloid leukaemia
     Route: 048
     Dates: start: 20250415, end: 20250415
  5. VENCLEXTA [Suspect]
     Active Substance: VENETOCLAX
     Indication: Acute myeloid leukaemia
     Route: 048
     Dates: end: 20240406
  6. VENCLEXTA [Suspect]
     Active Substance: VENETOCLAX
     Indication: Acute myeloid leukaemia
     Route: 048
     Dates: start: 20250404, end: 20250404
  7. VENCLEXTA [Suspect]
     Active Substance: VENETOCLAX
     Indication: Acute myeloid leukaemia
     Route: 048
     Dates: start: 20250405, end: 20250405
  8. Tylicol [Concomitant]
     Indication: Pyrexia
     Route: 042
     Dates: start: 20250626, end: 20250701
  9. Tylicol [Concomitant]
     Indication: Pyrexia
     Route: 042
     Dates: start: 20250403, end: 20250408
  10. Vacrax [Concomitant]
     Indication: Infection prophylaxis
     Dosage: 20MG
     Route: 048
     Dates: start: 20250404
  11. Encover [Concomitant]
     Indication: Decreased appetite
     Dosage: SOLUTION
     Route: 048
     Dates: start: 20250402
  12. Casfung [Concomitant]
     Indication: Pyrexia
     Route: 042
     Dates: start: 20250628, end: 20250709
  13. Casfung [Concomitant]
     Indication: Pyrexia
     Route: 042
     Dates: start: 20250407, end: 20250414
  14. Casfung [Concomitant]
     Indication: Pyrexia
     Route: 042
     Dates: start: 20250428, end: 20250508
  15. ALLOPURINOL [Concomitant]
     Active Substance: ALLOPURINOL
     Indication: Prophylaxis
     Route: 048
     Dates: start: 20250404
  16. LEVOFLOXACIN [Concomitant]
     Active Substance: LEVOFLOXACIN
     Indication: Infection prophylaxis
     Route: 048
     Dates: start: 20250404
  17. NOXAFIL [Concomitant]
     Active Substance: POSACONAZOLE
     Indication: Infection prophylaxis
     Dosage: 100MG?GASTRO RESISTANT
     Route: 048
     Dates: start: 20250404, end: 20250427
  18. Dulackhan easy [Concomitant]
     Indication: Constipation
     Dosage: TIME INTERVAL: 0.33333333 DAYS
     Route: 048
     Dates: start: 20250810, end: 20250821
  19. Dulackhan easy [Concomitant]
     Indication: Constipation
     Route: 048
     Dates: start: 20250602, end: 20250702
  20. Inno.n vancomycin hcl [Concomitant]
     Indication: Pyrexia
     Route: 042
     Dates: start: 20250706, end: 20250710
  21. DIFLUCAN [Concomitant]
     Active Substance: FLUCONAZOLE
     Indication: Infection prophylaxis
     Route: 048
     Dates: start: 20250528
  22. AMLODIPINE CAMSYLATE [Concomitant]
     Active Substance: AMLODIPINE CAMSYLATE
     Indication: Hypertension
     Route: 048
     Dates: start: 20250414
  23. Dicamax [Concomitant]
     Indication: Osteopenia
     Route: 048
     Dates: start: 20250402
  24. MAGNESIUM HYDROXIDE [Concomitant]
     Active Substance: MAGNESIUM HYDROXIDE
     Indication: Constipation
     Dosage: TIME INTERVAL: 0.33333333 DAYS
     Route: 048
     Dates: start: 20250811, end: 20250921
  25. RAMOSETRON HYDROCHLORIDE [Concomitant]
     Active Substance: RAMOSETRON HYDROCHLORIDE
     Indication: Prophylaxis of nausea and vomiting
     Dosage: AMP
     Route: 042
     Dates: start: 20250404
  26. Riperidon [Concomitant]
     Indication: Dementia
     Dosage: 0.5MG
     Route: 048
     Dates: start: 20250410
  27. MICARDIS [Concomitant]
     Active Substance: TELMISARTAN
     Indication: Hypertension
     Route: 048
     Dates: start: 20250416, end: 20250512
  28. QUETIAPINE FUMARATE [Concomitant]
     Active Substance: QUETIAPINE FUMARATE
     Indication: Dementia
     Dosage: 25MG
     Route: 048
     Dates: start: 20250410
  29. DIABEX [Concomitant]
     Active Substance: METFORMIN HYDROCHLORIDE
     Indication: Diabetes mellitus
     Route: 048
     Dates: start: 20250416
  30. Vizadakin [Concomitant]
     Indication: Acute myeloid leukaemia
     Route: 042
     Dates: start: 20250529, end: 20250604
  31. Vizadakin [Concomitant]
     Indication: Acute myeloid leukaemia
     Route: 042
     Dates: start: 20250404, end: 20250410
  32. Vizadakin [Concomitant]
     Indication: Acute myeloid leukaemia
     Route: 042
     Dates: start: 20250805
  33. Ursa daewoong [Concomitant]
     Indication: Blood bilirubin increased
     Dosage: TIME INTERVAL: 0.33333333 DAYS
     Route: 048
     Dates: start: 20250429, end: 20250505
  34. Ursa daewoong [Concomitant]
     Indication: Blood bilirubin increased
     Dosage: TIME INTERVAL: 0.33333333 DAYS
     Route: 048
     Dates: start: 20250909
  35. Godex [Concomitant]
     Indication: Blood bilirubin increased
     Dosage: TIME INTERVAL: 0.33333333 DAYS
     Route: 048
     Dates: start: 20250909
  36. Godex [Concomitant]
     Indication: Blood bilirubin increased
     Dosage: TIME INTERVAL: 0.33333333 DAYS
     Route: 048
     Dates: start: 20250429, end: 20250505
  37. Dong a perdipine [Concomitant]
     Indication: Blood pressure increased
     Dosage: 10ML
     Route: 042
     Dates: start: 20250407, end: 20250414
  38. LENOGRASTIM [Concomitant]
     Active Substance: LENOGRASTIM
     Indication: Neutrophil count decreased
     Dosage: 250MCG
     Route: 042
     Dates: start: 20250626, end: 20250709
  39. LENOGRASTIM [Concomitant]
     Active Substance: LENOGRASTIM
     Indication: Neutrophil count decreased
     Dosage: 250MCG
     Route: 042
     Dates: start: 20250415, end: 20250519
  40. Cacepin [Concomitant]
     Indication: Insomnia
     Route: 048
     Dates: start: 20250402, end: 20250409
  41. PRUCALOPRIDE SUCCINATE [Concomitant]
     Active Substance: PRUCALOPRIDE SUCCINATE
     Indication: Constipation
     Route: 048
     Dates: start: 20250602, end: 20250701
  42. SULFAMETHOXAZOLE\TRIMETHOPRIM [Concomitant]
     Active Substance: SULFAMETHOXAZOLE\TRIMETHOPRIM
     Indication: Infection prophylaxis
     Route: 048
     Dates: start: 20250404

REACTIONS (2)
  - Urticaria [Recovered/Resolved]
  - Pneumonia [Recovered/Resolved]

NARRATIVE: CASE EVENT DATE: 20250627
